FAERS Safety Report 4673821-8 (Version None)
Quarter: 2005Q2

REPORT INFORMATION
  Report Type: 
  Country: None (occurrence: None)
  Receive Date: 20050524
  Receipt Date: 20050503
  Transmission Date: 20051028
  Serious: Yes (Other)
  Sender: FDA-Public Use
  Company Number: PAR_0046_2005

PATIENT
  Age: 73 Year
  Sex: Female

DRUGS (5)
  1. SECURON [Suspect]
     Indication: HYPERTENSION
     Dosage: DF
  2. ESTROGENS  CONJUGATED [Concomitant]
  3. SALBUTAMOL [Concomitant]
  4. SALMETEROL [Concomitant]
  5. BECLOMETHASONE DIPROPIONATE [Concomitant]

REACTIONS (3)
  - BLOOD PRESSURE INCREASED [None]
  - CEREBROVASCULAR ACCIDENT [None]
  - PAIN IN EXTREMITY [None]
